FAERS Safety Report 8225643-9 (Version None)
Quarter: 2012Q1

REPORT INFORMATION
  Report Type: 
  Country: None (occurrence: None)
  Receive Date: 20120321
  Receipt Date: 20120312
  Transmission Date: 20120608
  Serious: Yes (Hospitalization)
  Sender: FDA-Public Use
  Company Number: US-OPTIMER-20120031

PATIENT

DRUGS (13)
  1. VANCOMYCIN [Concomitant]
     Indication: DIARRHOEA
     Dosage: UNK
     Dates: start: 20120101, end: 20120201
  2. VERAPAMIL [Concomitant]
     Dosage: UNK
     Route: 048
  3. LYRICA [Concomitant]
     Indication: NECK PAIN
     Dosage: 150 MG, BID
     Route: 048
  4. OXYCODONE HCL [Concomitant]
     Indication: PAIN MANAGEMENT
     Dosage: UNK, PRN
     Route: 048
  5. DIFICID [Suspect]
     Dosage: 200 MG, BID
     Route: 048
     Dates: start: 20120301, end: 20120310
  6. FLAGYL [Concomitant]
     Indication: DIARRHOEA
     Dosage: UNK
     Dates: start: 20120101, end: 20120101
  7. CITALOPRAM HYDROBROMIDE [Concomitant]
     Indication: DEPRESSION
  8. VICODIN [Concomitant]
     Indication: PAIN MANAGEMENT
     Dosage: UNK, PRN
     Route: 048
  9. NAPROXEN (ALEVE) [Concomitant]
     Indication: PAIN MANAGEMENT
     Dosage: PRN
     Route: 048
  10. ESTRADIOL [Concomitant]
     Indication: HORMONE THERAPY
     Dosage: 1 MG, QD
     Route: 048
  11. CITALOPRAM HYDROBROMIDE [Concomitant]
     Indication: ANXIETY
     Dosage: 20 MG, QD
     Route: 048
     Dates: start: 20111201
  12. HYDROCORT [Concomitant]
     Indication: ARTHRALGIA
     Dosage: UNK
     Dates: start: 20120101
  13. DIFICID [Suspect]
     Indication: CLOSTRIDIUM DIFFICILE COLITIS
     Dosage: 200 MG, BID
     Route: 048
     Dates: start: 20120101, end: 20120101

REACTIONS (6)
  - FATIGUE [None]
  - CONSTIPATION [None]
  - ABDOMINAL PAIN [None]
  - ENDOCRINE DISORDER [None]
  - ARTHRALGIA [None]
  - THYROID DISORDER [None]
